FAERS Safety Report 6178987-9 (Version None)
Quarter: 2009Q2

REPORT INFORMATION
  Report Type: 
  Country: None (occurrence: None)
  Receive Date: 20090505
  Receipt Date: 20090427
  Transmission Date: 20091009
  Serious: Yes (Hospitalization)
  Sender: FDA-Public Use
  Company Number: CH-WYE-G03572709

PATIENT
  Age: 49 Year
  Sex: Female

DRUGS (9)
  1. EFFEXOR [Suspect]
     Route: 048
     Dates: start: 20080606, end: 20080610
  2. EFFEXOR [Interacting]
     Route: 048
     Dates: start: 20080611, end: 20090120
  3. EFFEXOR [Interacting]
     Route: 048
     Dates: start: 20090121, end: 20090122
  4. EFFEXOR [Interacting]
     Route: 048
     Dates: start: 20090202
  5. AKINETON [Interacting]
     Dosage: 2 MG TOT AT 13.30 (FROM THE RESERVE)
     Route: 048
     Dates: start: 20090118, end: 20090118
  6. SEROQUEL [Interacting]
     Dosage: 100-600 MG DAILY
     Route: 048
     Dates: start: 20080521, end: 20080602
  7. SEROQUEL [Interacting]
     Route: 048
     Dates: start: 20080603, end: 20090115
  8. SEROQUEL [Interacting]
     Route: 048
     Dates: start: 20090116, end: 20090119
  9. SEROQUEL [Interacting]
     Route: 048
     Dates: start: 20090120

REACTIONS (8)
  - BLOOD CHOLESTEROL INCREASED [None]
  - BLOOD PROLACTIN INCREASED [None]
  - CONDITION AGGRAVATED [None]
  - CONSTIPATION [None]
  - DRUG INTERACTION [None]
  - PSYCHIATRIC DECOMPENSATION [None]
  - URINARY RETENTION [None]
  - WEIGHT INCREASED [None]
